FAERS Safety Report 8183279-2 (Version None)
Quarter: 2012Q1

REPORT INFORMATION
  Report Type: 
  Country: None (occurrence: None)
  Receive Date: 20120305
  Receipt Date: 20120301
  Transmission Date: 20120608
  Serious: Yes (Life-Threatening, Hospitalization, Other)
  Sender: FDA-Public Use
  Company Number: DE-ABBOTT-09P-062-0562195-00

PATIENT
  Sex: Male
  Weight: 86 kg

DRUGS (5)
  1. DICLOFENAC SODIUM [Concomitant]
     Indication: PSORIATIC ARTHROPATHY
     Route: 048
  2. HUMIRA [Suspect]
  3. METHOTREXATE [Concomitant]
     Indication: PSORIATIC ARTHROPATHY
     Route: 048
  4. HUMIRA [Suspect]
     Indication: PSORIATIC ARTHROPATHY
     Route: 058
     Dates: start: 20071201
  5. METAMIZOL [Concomitant]
     Indication: PRODUCT USED FOR UNKNOWN INDICATION
     Dosage: 500 MG DAILY

REACTIONS (2)
  - ANGINA UNSTABLE [None]
  - MYOCARDIAL INFARCTION [None]
